FAERS Safety Report 6847644-5 (Version None)
Quarter: 2010Q3

REPORT INFORMATION
  Report Type: 
  Country: None (occurrence: None)
  Receive Date: 20100716
  Receipt Date: 20100702
  Transmission Date: 20110219
  Serious: Yes (Other)
  Sender: FDA-Public Use
  Company Number: PHHY2009AU40544

PATIENT
  Sex: Female

DRUGS (3)
  1. GLEEVEC [Suspect]
     Indication: CHRONIC MYELOID LEUKAEMIA
     Dosage: 400  MG/DAY
     Route: 048
     Dates: start: 20090818
  2. ADACAN [Concomitant]
     Indication: HYPERTENSION
  3. PRIMRIN [Concomitant]
     Indication: HORMONE REPLACEMENT THERAPY

REACTIONS (11)
  - ANAEMIA [None]
  - BLOOD BLISTER [None]
  - FATIGUE [None]
  - GASTROINTESTINAL HAEMORRHAGE [None]
  - HEPATIC ENZYME ABNORMAL [None]
  - HEPATIC NEOPLASM [None]
  - MYALGIA [None]
  - NAUSEA [None]
  - PRURITUS [None]
  - RASH [None]
  - VOMITING [None]
